FAERS Safety Report 11876405 (Version 1)
Quarter: 2015Q4

REPORT INFORMATION
  Report Type: Spontaneous
  Country: CN (occurrence: CN)
  Receive Date: 20151229
  Receipt Date: 20151229
  Transmission Date: 20160305
  Serious: Yes (Other)
  Sender: FDA-Public Use
  Company Number: CN-GLAXOSMITHKLINE-CN2015GSK181096

PATIENT
  Age: 53 Year
  Sex: Female

DRUGS (5)
  1. VECURONIUM [Suspect]
     Active Substance: VECURONIUM BROMIDE
     Dosage: 6 MG, UNK
  2. DEXAMETHASONE. [Suspect]
     Active Substance: DEXAMETHASONE
     Dosage: 10 MG, UNK
  3. REMIFENTANIL [Suspect]
     Active Substance: REMIFENTANIL
     Dosage: 3 UNK, UNK
  4. PROPOFOL. [Suspect]
     Active Substance: PROPOFOL
     Dosage: 80 MG, UNK
  5. CEFUROXIME. [Suspect]
     Active Substance: CEFUROXIME
     Dosage: 1.5 G, UNK

REACTIONS (8)
  - Flushing [Unknown]
  - Respiratory acidosis [Unknown]
  - Blood calcium decreased [Unknown]
  - Conjunctival hyperaemia [Unknown]
  - Anaphylactic shock [Recovered/Resolved]
  - Blood potassium decreased [Unknown]
  - Oedema [Unknown]
  - Respiration abnormal [Unknown]
